FAERS Safety Report 7033567-8 (Version None)
Quarter: 2010Q4

REPORT INFORMATION
  Report Type: 
  Country: None (occurrence: None)
  Receive Date: 20101007
  Receipt Date: 20100924
  Transmission Date: 20110411
  Serious: Yes (Hospitalization)
  Sender: FDA-Public Use
  Company Number: PHHY2010US39984

PATIENT
  Sex: Female
  Weight: 56.7 kg

DRUGS (2)
  1. EXJADE [Suspect]
     Indication: MYELODYSPLASTIC SYNDROME
     Dosage: 1000 MG, QD
     Route: 048
  2. EXJADE [Suspect]
     Dosage: 1500 MG, QD
     Route: 048

REACTIONS (2)
  - DEMENTIA [None]
  - MALAISE [None]
